FAERS Safety Report 5979410-7 (Version None)
Quarter: 2008Q4

REPORT INFORMATION
  Report Type: 
  Country: None (occurrence: None)
  Receive Date: 20081126
  Receipt Date: 20081112
  Transmission Date: 20090506
  Serious: Yes (Hospitalization, Disabling)
  Sender: FDA-Public Use
  Company Number: 2008PV000086

PATIENT
  Age: 53 Year
  Sex: Female

DRUGS (1)
  1. DEPOCYT [Suspect]
     Indication: LYMPHOMA
     Dosage: 50 MG; QM; INTH
     Route: 037
     Dates: start: 20080116, end: 20080417

REACTIONS (3)
  - CAUDA EQUINA SYNDROME [None]
  - DISEASE PROGRESSION [None]
  - DRUG TOXICITY [None]
